FAERS Safety Report 6844742-7 (Version None)
Quarter: 2010Q3

REPORT INFORMATION
  Report Type: 
  Country: None (occurrence: None)
  Receive Date: 20100715
  Receipt Date: 20100712
  Transmission Date: 20110219
  Serious: Yes (Other)
  Sender: FDA-Public Use
  Company Number: US-BRISTOL-MYERS SQUIBB COMPANY-15190119

PATIENT
  Age: 27 Year
  Sex: Female

DRUGS (3)
  1. REYATAZ [Suspect]
     Indication: ANTIRETROVIRAL THERAPY
     Dosage: COURSE:1, TAB
     Route: 048
     Dates: start: 20100416
  2. NORVIR [Suspect]
     Indication: ANTIRETROVIRAL THERAPY
     Dosage: COURSE:1
     Route: 048
     Dates: start: 20100416
  3. TRUVADA [Suspect]
     Indication: ANTIRETROVIRAL THERAPY
     Dosage: COURSE:1 1DF:1 UNIT NOS
     Route: 048
     Dates: start: 20100416

REACTIONS (2)
  - ABORTION SPONTANEOUS [None]
  - PREGNANCY [None]
